FAERS Safety Report 6831555-5 (Version None)
Quarter: 2010Q3

REPORT INFORMATION
  Report Type: 
  Country: None (occurrence: None)
  Receive Date: 20100712
  Receipt Date: 20100629
  Transmission Date: 20110219
  Serious: Yes (Other)
  Sender: FDA-Public Use
  Company Number: PHHY2010US42803

PATIENT
  Sex: Female

DRUGS (1)
  1. FANAPT [Suspect]
     Dosage: 6 MG, UNK

REACTIONS (3)
  - DRY MOUTH [None]
  - HALLUCINATION [None]
  - HALLUCINATION, AUDITORY [None]
